FAERS Safety Report 16354997 (Version 1)
Quarter: 2019Q2

REPORT INFORMATION
  Report Type: Spontaneous
  Country: US (occurrence: US)
  Receive Date: 20190524
  Receipt Date: 20190524
  Transmission Date: 20190711
  Serious: Yes (Hospitalization)
  Sender: FDA-Public Use
  Company Number: US-STASON PHARMACEUTICALS, INC.-2067449

PATIENT
  Age: 16 Year
  Sex: Male
  Weight: 72.4 kg

DRUGS (1)
  1. MERCAPTOPURINE. [Suspect]
     Active Substance: MERCAPTOPURINE

REACTIONS (1)
  - Anaemia [None]
